FAERS Safety Report 14433873 (Version 1)
Quarter: 2018Q1

REPORT INFORMATION
  Report Type: Spontaneous
  Country: US (occurrence: US)
  Receive Date: 20180124
  Receipt Date: 20180124
  Transmission Date: 20180509
  Serious: Yes (Other)
  Sender: FDA-Public Use
  Company Number: US-CELGENEUS-USA-20180106388

PATIENT
  Age: 71 Year
  Sex: Female

DRUGS (1)
  1. OTEZLA [Suspect]
     Active Substance: APREMILAST
     Indication: PSORIASIS
     Dosage: 60 MILLIGRAM
     Route: 048
     Dates: start: 20161012

REACTIONS (4)
  - Multiple sclerosis [Unknown]
  - Gastrointestinal disorder [Unknown]
  - Quality of life decreased [Unknown]
  - Joint dislocation [Unknown]

NARRATIVE: CASE EVENT DATE: 20180111
